FAERS Safety Report 16517383 (Version 3)
Quarter: 2019Q3

REPORT INFORMATION
  Report Type: Spontaneous
  Country: JP (occurrence: JP)
  Receive Date: 20190702
  Receipt Date: 20190821
  Transmission Date: 20191004
  Serious: Yes (Other)
  Sender: FDA-Public Use
  Company Number: JP-PFIZER INC-2019248695

PATIENT
  Age: 71 Year
  Sex: Male
  Weight: 54.6 kg

DRUGS (10)
  1. LIXIANA [Suspect]
     Active Substance: EDOXABAN TOSYLATE
     Dosage: 30 MG, QD
     Route: 065
  2. TAKECAB [Concomitant]
     Active Substance: VONOPRAZAN FUMURATE
     Dosage: 10 MG, QD
     Route: 065
  3. ANCARON [Suspect]
     Active Substance: AMIODARONE HYDROCHLORIDE
     Indication: CARDIAC FAILURE
     Dosage: 100 MG, BID
     Route: 048
     Dates: start: 20180105, end: 20180712
  4. PITAVASTATIN CALCIUM [Concomitant]
     Active Substance: PITAVASTATIN CALCIUM
     Dosage: 2 MG, QD
     Route: 065
  5. AZOSEMIDE [Concomitant]
     Active Substance: AZOSEMIDE
     Dosage: 60 MG, QD
     Route: 065
  6. ANCARON [Suspect]
     Active Substance: AMIODARONE HYDROCHLORIDE
     Indication: ATRIAL FIBRILLATION
  7. BELSOMRA [Concomitant]
     Active Substance: SUVOREXANT
     Dosage: 15 MG, QD
     Route: 065
  8. RIZE [CLOTIAZEPAM] [Concomitant]
     Active Substance: CLOTIAZEPAM
     Dosage: 5 MG, QD
     Route: 065
  9. ANCARON [Suspect]
     Active Substance: AMIODARONE HYDROCHLORIDE
     Indication: CONGESTIVE CARDIOMYOPATHY
     Dosage: 100 MG, QD
     Route: 048
     Dates: start: 20180713, end: 20180813
  10. MIYA-BM [Concomitant]
     Active Substance: CLOSTRIDIUM BUTYRICUM SPORES STRAIN M-55
     Dosage: 1 G, TID
     Route: 065

REACTIONS (1)
  - Pulmonary toxicity [Not Recovered/Not Resolved]
